FAERS Safety Report 6220167-2 (Version None)
Quarter: 2009Q2

REPORT INFORMATION
  Report Type: 
  Country: None (occurrence: None)
  Receive Date: 20090609
  Receipt Date: 20090604
  Transmission Date: 20091009
  Serious: Yes (Death, Hospitalization, Disabling, Other)
  Sender: FDA-Public Use
  Company Number: PHHO2009FR04556

PATIENT
  Sex: Male
  Weight: 82 kg

DRUGS (13)
  1. RAD 666 RAD+TAB [Suspect]
     Indication: RENAL CANCER METASTATIC
     Dosage: 10MG/DAILY
     Route: 048
     Dates: start: 20090320, end: 20090402
  2. ALDACTONE [Concomitant]
  3. ATARAX [Concomitant]
  4. LEVOTHYROX [Concomitant]
  5. LYRICA [Concomitant]
  6. MEDIATOR [Concomitant]
  7. XANAX [Concomitant]
  8. NEORECORMON [Concomitant]
  9. OXYNORM [Concomitant]
  10. SERUM [Concomitant]
  11. SOLU-MEDROL [Concomitant]
  12. ESOMEPRAZOLE MAGNESIUM [Concomitant]
  13. MUCOMYST [Concomitant]

REACTIONS (34)
  - ANISOCYTOSIS [None]
  - ASTHENIA [None]
  - ATRIAL FIBRILLATION [None]
  - BICYTOPENIA [None]
  - CARDIAC TAMPONADE [None]
  - CARDIO-RESPIRATORY ARREST [None]
  - COAGULOPATHY [None]
  - CONNECTIVE TISSUE DISORDER [None]
  - EJECTION FRACTION ABNORMAL [None]
  - FLUID RETENTION [None]
  - GENERAL PHYSICAL HEALTH DETERIORATION [None]
  - HEPATOJUGULAR REFLUX [None]
  - HILAR LYMPHADENOPATHY [None]
  - HYPERGLYCAEMIA [None]
  - HYPERTHERMIA [None]
  - LUNG INFECTION [None]
  - LYMPHOEDEMA [None]
  - METASTASES TO LIVER [None]
  - METASTASES TO LUNG [None]
  - MYOCARDIAL INFARCTION [None]
  - MYOCARDIAL ISCHAEMIA [None]
  - NORMOCHROMIC NORMOCYTIC ANAEMIA [None]
  - OEDEMA PERIPHERAL [None]
  - OROPHARYNGEAL CANDIDIASIS [None]
  - PAIN [None]
  - PARANEOPLASTIC SYNDROME [None]
  - PERICARDIAL DRAINAGE [None]
  - PERICARDIAL EFFUSION [None]
  - PERICARDITIS [None]
  - PULMONARY OEDEMA [None]
  - SINUS TACHYCARDIA [None]
  - TACHYPNOEA [None]
  - THROMBOCYTOPENIA [None]
  - WHITE BLOOD CELL COUNT INCREASED [None]
